FAERS Safety Report 8986827 (Version 1)
Quarter: 2012Q4

REPORT INFORMATION
  Report Type: 
  Country: CA (occurrence: CA)
  Receive Date: 20121226
  Receipt Date: 20121226
  Transmission Date: 20130627
  Serious: Yes (Other)
  Sender: FDA-Public Use
  Company Number: CA-BAYER-2012-133472

PATIENT
  Sex: Female

DRUGS (2)
  1. ASPIRIN [Suspect]
     Dosage: UNK
  2. ASPIRIN [Suspect]
     Dosage: UNK
     Dates: start: 20121122

REACTIONS (5)
  - Eye haemorrhage [None]
  - Blindness [None]
  - Contusion [None]
  - Oedema peripheral [None]
  - Contusion [None]
